FAERS Safety Report 10145000 (Version 3)
Quarter: 2014Q2

REPORT INFORMATION
  Report Type: Spontaneous
  Country: JP (occurrence: JP)
  Receive Date: 20140501
  Receipt Date: 20140527
  Transmission Date: 20141212
  Serious: Yes (Other)
  Sender: FDA-Public Use
  Company Number: JP-AMGEN-JPNSP2014031040

PATIENT
  Age: 35 Year
  Sex: Female

DRUGS (2)
  1. ENBREL [Suspect]
     Indication: RHEUMATOID ARTHRITIS
     Dosage: UNK, UNSPECIFIED
     Route: 058
     Dates: start: 20060523, end: 20081110
  2. ENBREL [Suspect]
     Dosage: UNK, UNSPECIFIED
     Route: 058
     Dates: start: 20090223

REACTIONS (1)
  - Abortion missed [Recovered/Resolved]
